FAERS Safety Report 7524406-7 (Version None)
Quarter: 2011Q2

REPORT INFORMATION
  Report Type: 
  Country: None (occurrence: None)
  Receive Date: 20110606
  Receipt Date: 20110530
  Transmission Date: 20111010
  Serious: Yes (Death, Other)
  Sender: FDA-Public Use
  Company Number: PHHY2011BR46931

PATIENT
  Sex: Male

DRUGS (2)
  1. DIOVAN [Suspect]
     Dosage: 320 MG, UNK
  2. DIOVAN [Suspect]
     Indication: CARDIAC DISORDER
     Dosage: 160 MG, UNK

REACTIONS (6)
  - ASPIRATION BRONCHIAL [None]
  - RESPIRATORY DISORDER [None]
  - BENIGN PROSTATIC HYPERPLASIA [None]
  - HYPOXIA [None]
  - PNEUMONIA [None]
  - CARDIAC ARREST [None]
